FAERS Safety Report 8557021-7 (Version None)
Quarter: 2012Q3

REPORT INFORMATION
  Report Type: 
  Country: None (occurrence: None)
  Receive Date: 20120801
  Receipt Date: 20120723
  Transmission Date: 20120928
  Serious: Yes (Hospitalization)
  Sender: FDA-Public Use
  Company Number: US-ROCHE-1088308

PATIENT
  Sex: Female
  Weight: 106.3 kg

DRUGS (15)
  1. ACETAMINOPHEN [Concomitant]
     Dates: start: 20120519, end: 20120521
  2. OMEPRAZOLE [Concomitant]
     Dates: start: 20120426
  3. ACETAMINOPHEN [Concomitant]
     Dates: start: 20120516, end: 20120517
  4. ACETAMINOPHEN [Concomitant]
     Dates: start: 20120518, end: 20120518
  5. ACETAMINOPHEN [Concomitant]
     Dates: start: 20120522, end: 20120522
  6. ACETAMINOPHEN [Concomitant]
     Dates: start: 20120527, end: 20120527
  7. ACETAMINOPHEN [Concomitant]
     Dates: start: 20120531, end: 20120601
  8. IBUPROFEN [Concomitant]
     Dates: start: 20120524, end: 20120524
  9. IBUPROFEN [Concomitant]
     Dates: start: 20120621, end: 20120704
  10. MORPHINE SULFATE [Concomitant]
     Dates: start: 20120601, end: 20120602
  11. VEMURAFENIB [Suspect]
     Indication: MALIGNANT MELANOMA
     Dosage: MOST RECENT DOSE PRIOR TO SAE ON 06/JUL/2012
     Route: 048
     Dates: start: 20120416
  12. BENADRYL [Concomitant]
     Dates: start: 20120426
  13. ACETAMINOPHEN [Concomitant]
     Dates: start: 20120523, end: 20120526
  14. IBUPROFEN [Concomitant]
     Dates: start: 20120525, end: 20120526
  15. IBUPROFEN [Concomitant]
     Dates: start: 20120527, end: 20120527

REACTIONS (1)
  - OCULAR ISCHAEMIC SYNDROME [None]
